FAERS Safety Report 6523098-3 (Version None)
Quarter: 2009Q4

REPORT INFORMATION
  Report Type: 
  Country: None (occurrence: None)
  Receive Date: 20091222
  Receipt Date: 20091209
  Transmission Date: 20100525
  Serious: No
  Sender: FDA-Public Use
  Company Number: 008357

PATIENT
  Age: 6 Year
  Sex: Male

DRUGS (3)
  1. BUSULFEX [Suspect]
     Indication: BONE MARROW TRANSPLANT
  2. CYCLOPHOSPHAMIDE [Concomitant]
  3. ANTI-THYMOCYTE GLOBULIN NOS [Concomitant]

REACTIONS (8)
  - ABDOMINAL DISTENSION [None]
  - ASCITES [None]
  - BLOOD BILIRUBIN INCREASED [None]
  - LIVER DISORDER [None]
  - PULMONARY OEDEMA [None]
  - THROMBOTIC MICROANGIOPATHY [None]
  - URINE OUTPUT DECREASED [None]
  - VENOOCCLUSIVE LIVER DISEASE [None]
